FAERS Safety Report 7434992-3 (Version None)
Quarter: 2011Q2

REPORT INFORMATION
  Report Type: 
  Country: None (occurrence: None)
  Receive Date: 20110415
  Receipt Date: 20110401
  Transmission Date: 20111010
  Serious: Yes (Hospitalization, Other)
  Sender: FDA-Public Use
  Company Number: 2011-00400

PATIENT
  Age: 74 Year
  Sex: Female
  Weight: 65.77 kg

DRUGS (1)
  1. LOSARTAN POTASSIUM [Suspect]
     Indication: HYPERTENSION
     Dosage: 100 MG, PER ORAL; 50 MG (50 MG, 1 IN 1 D), PER ORAL
     Route: 048
     Dates: start: 20110201

REACTIONS (6)
  - ASTHENIA [None]
  - HEART RATE INCREASED [None]
  - BLOOD GLUCOSE DECREASED [None]
  - COUGH [None]
  - TREMOR [None]
  - SOMNOLENCE [None]
